FAERS Safety Report 22341072 (Version 1)
Quarter: 2023Q2

REPORT INFORMATION
  Report Type: Spontaneous
  Country: US (occurrence: US)
  Receive Date: 20230518
  Receipt Date: 20230518
  Transmission Date: 20230722
  Serious: No
  Sender: FDA-Public Use
  Company Number: US-PFIZER INC-202300192274

PATIENT
  Age: 82 Year
  Sex: Female
  Weight: 56.25 kg

DRUGS (1)
  1. PREMARIN [Suspect]
     Active Substance: ESTROGENS, CONJUGATED
     Indication: Vulvovaginal dryness
     Dosage: 0.5 GRAMS APPLIED AT BEDTIME TWICE WEEKLY
     Dates: start: 202305, end: 202305

REACTIONS (2)
  - Pruritus [Recovered/Resolved]
  - Insomnia [Unknown]

NARRATIVE: CASE EVENT DATE: 20230501
